FAERS Safety Report 8893550 (Version 3)
Quarter: 2012Q4

REPORT INFORMATION
  Report Type: 
  Country: US (occurrence: US)
  Receive Date: 20121108
  Receipt Date: 20121203
  Transmission Date: 20130627
  Serious: No
  Sender: FDA-Public Use
  Company Number: US-PFIZER INC-2012266961

PATIENT
  Age: 59 Year
  Sex: Female
  Weight: 88.44 kg

DRUGS (14)
  1. LYRICA [Suspect]
     Indication: PAIN IN LEG
     Dosage: 75 mg, 3x/day
  2. GABAPENTIN [Suspect]
     Indication: PAIN IN LEG
     Dosage: 300 mg, 3x/day
     Dates: start: 2012
  3. ACETYLSALICYLIC ACID [Concomitant]
     Indication: OPEN HEART SURGERY
     Dosage: 81 mg, daily
  4. IBUPROFEN [Concomitant]
     Indication: PAIN
     Dosage: UNK, as needed
  5. FISH OIL [Concomitant]
     Dosage: 1000 mg, daily
  6. VITAMIN B12 [Concomitant]
     Dosage: UNK, daily
  7. METOPROLOL [Concomitant]
     Dosage: splitting 25mg tablet two times a day
  8. CITALOPRAM [Concomitant]
     Dosage: 20 mg, 2x/day
  9. SIMVASTATIN [Concomitant]
     Dosage: 40 mg, daily
  10. METFORMIN [Concomitant]
     Dosage: 100 mg, 2x/day
  11. LISINOPRIL [Concomitant]
     Dosage: 5 mg, daily
  12. CILOSTAZOL [Concomitant]
     Dosage: 50 mg, 2x/day
  13. ZOLPIDEM [Concomitant]
     Dosage: 10 mg, daily at night
  14. BUSPIRONE [Concomitant]
     Dosage: 30 mg, 2x/day

REACTIONS (2)
  - Drug ineffective [Not Recovered/Not Resolved]
  - Gait disturbance [Not Recovered/Not Resolved]
